FAERS Safety Report 8556587-0 (Version None)
Quarter: 2012Q3

REPORT INFORMATION
  Report Type: 
  Country: None (occurrence: None)
  Receive Date: 20120719
  Receipt Date: 20120705
  Transmission Date: 20120928
  Serious: Yes (Hospitalization, Other)
  Sender: FDA-Public Use
  Company Number: DSJ-2012-11531

PATIENT
  Age: 63 Year
  Sex: Male
  Weight: 56.7 kg

DRUGS (5)
  1. PARIENT (RABEPRAZOLE SODIUM) [Concomitant]
  2. TRYTHMEN (TRICHLORMETHIAZIDE) [Concomitant]
  3. TAMSULOSIN HYDROCHLORIDE [Concomitant]
  4. OLMESARTAN MEDOXOMIL [Suspect]
     Indication: ESSENTIAL HYPERTENSION
     Dosage: 40 MG (40 MG, 1 IN 1 D), PER ORAL
     Route: 048
     Dates: start: 20120224, end: 20120602
  5. AMLODIPINE [Concomitant]

REACTIONS (6)
  - DEPRESSED LEVEL OF CONSCIOUSNESS [None]
  - INCONTINENCE [None]
  - MALAISE [None]
  - HYPOGLYCAEMIA [None]
  - MUSCULAR WEAKNESS [None]
  - FALL [None]
